FAERS Safety Report 21315974 (Version 1)
Quarter: 2022Q3

REPORT INFORMATION
  Report Type: Spontaneous
  Country: US (occurrence: US)
  Receive Date: 20220910
  Receipt Date: 20220910
  Transmission Date: 20221026
  Serious: Yes (Other)
  Sender: FDA-Public Use
  Company Number: US-CIPLA LTD.-2022US05347

PATIENT
  Age: 20 Year
  Sex: Male

DRUGS (10)
  1. DECITABINE [Suspect]
     Active Substance: DECITABINE
     Indication: Non-Hodgkin^s lymphoma
     Dosage: UNK
     Route: 065
  2. DECITABINE [Suspect]
     Active Substance: DECITABINE
     Indication: T-cell lymphoma
  3. CLOFARABINE [Suspect]
     Active Substance: CLOFARABINE
     Indication: Non-Hodgkin^s lymphoma
     Dosage: UNK
     Route: 065
  4. CLOFARABINE [Suspect]
     Active Substance: CLOFARABINE
     Indication: T-cell lymphoma
  5. MITOXANTRONE [Suspect]
     Active Substance: MITOXANTRONE HYDROCHLORIDE
     Indication: T-cell lymphoma
     Dosage: UNK
     Route: 065
  6. MITOXANTRONE [Suspect]
     Active Substance: MITOXANTRONE HYDROCHLORIDE
     Indication: Non-Hodgkin^s lymphoma
  7. CYTARABINE [Suspect]
     Active Substance: CYTARABINE
     Indication: T-cell lymphoma
     Dosage: UNK
     Route: 065
  8. CYTARABINE [Suspect]
     Active Substance: CYTARABINE
     Indication: Non-Hodgkin^s lymphoma
  9. VENETOCLAX [Suspect]
     Active Substance: VENETOCLAX
     Indication: T-cell lymphoma
     Dosage: 400 MG PER DAY
     Route: 065
  10. VENETOCLAX [Suspect]
     Active Substance: VENETOCLAX
     Indication: Non-Hodgkin^s lymphoma

REACTIONS (3)
  - Coagulopathy [Unknown]
  - Thrombocytopenia [Unknown]
  - Febrile neutropenia [Unknown]
